FAERS Safety Report 22798824 (Version 3)
Quarter: 2023Q4

REPORT INFORMATION
  Report Type: Spontaneous
  Country: US (occurrence: US)
  Receive Date: 20230808
  Receipt Date: 20231102
  Transmission Date: 20240109
  Serious: No
  Sender: FDA-Public Use
  Company Number: US-PFIZER INC-PV202300132098

PATIENT
  Age: 79 Year
  Sex: Female
  Weight: 65.76 kg

DRUGS (1)
  1. SOMATROPIN [Suspect]
     Active Substance: SOMATROPIN
     Dosage: ALTERNATES 2 DAYS 0.3MG AND 1 DAY 0.4MG

REACTIONS (2)
  - Wrong technique in device usage process [Unknown]
  - Device mechanical issue [Unknown]
